FAERS Safety Report 7781958-X (Version None)
Quarter: 2011Q3

REPORT INFORMATION
  Report Type: 
  Country: None (occurrence: None)
  Receive Date: 20110927
  Receipt Date: 20110915
  Transmission Date: 20111222
  Serious: Yes (Hospitalization, Other)
  Sender: FDA-Public Use
  Company Number: PHEH2011US02369

PATIENT
  Sex: Female

DRUGS (5)
  1. OXYBUTYNIN [Concomitant]
     Dosage: UNK UKN, UNK
  2. GILENYA [Suspect]
     Indication: MULTIPLE SCLEROSIS
     Dosage: 0.5 MG, QD
     Route: 048
     Dates: start: 20110818, end: 20110818
  3. BACLOFEN [Concomitant]
     Dosage: UNK UKN, UNK
  4. CITALOPRAM [Concomitant]
     Dosage: UNK UKN, UNK
  5. DANTRIUM [Concomitant]
     Dosage: UNK UKN, UNK

REACTIONS (2)
  - HEART RATE DECREASED [None]
  - CHEST PAIN [None]
